FAERS Safety Report 8043308-3 (Version None)
Quarter: 2012Q1

REPORT INFORMATION
  Report Type: 
  Country: None (occurrence: None)
  Receive Date: 20120112
  Receipt Date: 20120106
  Transmission Date: 20120608
  Serious: Yes (Other)
  Sender: FDA-Public Use
  Company Number: US-GLAXOSMITHKLINE-A0960647A

PATIENT
  Age: 56 Year
  Sex: Female
  Weight: 55.9 kg

DRUGS (3)
  1. UNKNOWN [Concomitant]
  2. SUMATRIPTAN [Suspect]
     Indication: PRODUCT USED FOR UNKNOWN INDICATION
     Dosage: 50MG UNKNOWN
  3. SUMATRIPTAN [Suspect]
     Indication: MIGRAINE
     Dosage: 20MG AS REQUIRED
     Route: 045

REACTIONS (4)
  - LIP SWELLING [None]
  - VIITH NERVE PARALYSIS [None]
  - SWELLING FACE [None]
  - HEADACHE [None]
